FAERS Safety Report 17342003 (Version 1)
Quarter: 2020Q1

REPORT INFORMATION
  Report Type: Spontaneous
  Country: US (occurrence: US)
  Receive Date: 20200129
  Receipt Date: 20200129
  Transmission Date: 20200409
  Serious: No
  Sender: FDA-Public Use
  Company Number: US-ALLERGAN-1904563US

PATIENT
  Age: 36 Year
  Sex: Female

DRUGS (2)
  1. BOTOX COSMETIC [Suspect]
     Active Substance: ONABOTULINUMTOXINA
     Indication: SKIN WRINKLING
     Dosage: 20 UNITS, SINGLE
     Route: 030
     Dates: start: 20190115, end: 20190115
  2. NALTREXONE [Concomitant]
     Active Substance: NALTREXONE

REACTIONS (12)
  - Asthenopia [Not Recovered/Not Resolved]
  - Extraocular muscle disorder [Recovering/Resolving]
  - Anxiety [Unknown]
  - Vision blurred [Not Recovered/Not Resolved]
  - Dizziness [Unknown]
  - Injection site rash [Recovered/Resolved]
  - Visual impairment [Recovering/Resolving]
  - Nausea [Unknown]
  - Faeces discoloured [Not Recovered/Not Resolved]
  - Asthenopia [Recovering/Resolving]
  - Injection site pruritus [Recovered/Resolved]
  - Headache [Not Recovered/Not Resolved]

NARRATIVE: CASE EVENT DATE: 201901
